FAERS Safety Report 17214981 (Version 1)
Quarter: 2020Q1

REPORT INFORMATION
  Report Type: Spontaneous
  Country: US (occurrence: US)
  Receive Date: 20191229
  Receipt Date: 20191229
  Transmission Date: 20200409
  Serious: Yes (Life-Threatening, Disabling, Other)
  Sender: FDA-Public Use
  Company Number: None

PATIENT
  Age: 32 Year
  Sex: Female
  Weight: 107.95 kg

DRUGS (2)
  1. MIRENA [Suspect]
     Active Substance: LEVONORGESTREL
  2. CYMBALTA [Suspect]
     Active Substance: DULOXETINE HYDROCHLORIDE

REACTIONS (4)
  - Insomnia [None]
  - Irritability [None]
  - Headache [None]
  - Complication associated with device [None]

NARRATIVE: CASE EVENT DATE: 20191227
